FAERS Safety Report 7432228-0 (Version None)
Quarter: 2011Q2

REPORT INFORMATION
  Report Type: 
  Country: None (occurrence: None)
  Receive Date: 20110422
  Receipt Date: 20110406
  Transmission Date: 20111010
  Serious: No
  Sender: FDA-Public Use
  Company Number: US-B.I. PHARMACEUTICALS,INC./RIDGEFIELD-2011-BP-10177BP

PATIENT
  Age: 50 Year
  Sex: Female

DRUGS (3)
  1. PRADAXA [Suspect]
     Indication: ATRIAL FIBRILLATION
     Route: 048
     Dates: start: 20110330
  2. BYSTOLIC [Concomitant]
     Indication: VENTRICULAR TACHYCARDIA
     Dosage: 20 MG
     Route: 048
     Dates: start: 20090101
  3. DIOVAN [Concomitant]
     Indication: ATRIAL FIBRILLATION
     Dosage: 320 MG
     Route: 048
     Dates: start: 20110330

REACTIONS (3)
  - VOMITING [None]
  - ABDOMINAL PAIN UPPER [None]
  - NAUSEA [None]
